FAERS Safety Report 5230103-3 (Version None)
Quarter: 2007Q1

REPORT INFORMATION
  Report Type: 
  Country: None (occurrence: None)
  Receive Date: 20070206
  Receipt Date: 20060724
  Transmission Date: 20070707
  Serious: No
  Sender: FDA-Public Use
  Company Number: US-GLAXOSMITHKLINE-A0610640A

PATIENT
  Age: 83 Year
  Sex: Female

DRUGS (2)
  1. PAXIL CR [Suspect]
     Indication: DEPRESSION
     Dosage: 25MG PER DAY
     Route: 048
     Dates: start: 20060607, end: 20060614
  2. FIORINAL [Concomitant]

REACTIONS (4)
  - ANOREXIA [None]
  - CONSTIPATION [None]
  - HEAD BANGING [None]
  - NAUSEA [None]
